FAERS Safety Report 4912407-4 (Version None)
Quarter: 2006Q1

REPORT INFORMATION
  Report Type: 
  Country: None (occurrence: None)
  Receive Date: 20060215
  Receipt Date: 20050301
  Transmission Date: 20060701
  Serious: No
  Sender: FDA-Public Use
  Company Number: US-GLAXOSMITHKLINE-A0547787A

PATIENT
  Age: 58 Year
  Sex: Female

DRUGS (4)
  1. VALTREX [Suspect]
     Indication: HERPES ZOSTER
     Dosage: 500MG TWICE PER DAY
     Route: 048
     Dates: start: 20050226
  2. CYMBALTA [Concomitant]
  3. PLAQUENIL [Concomitant]
  4. ASPIRIN [Concomitant]

REACTIONS (2)
  - DYSPEPSIA [None]
  - HEADACHE [None]
